FAERS Safety Report 7866197-6 (Version None)
Quarter: 2011Q4

REPORT INFORMATION
  Report Type: 
  Country: None (occurrence: None)
  Receive Date: 20111028
  Receipt Date: 20110510
  Transmission Date: 20120403
  Serious: No
  Sender: FDA-Public Use
  Company Number: US-GLAXOSMITHKLINE-A0926807A

PATIENT
  Age: 82 Year
  Sex: Female

DRUGS (6)
  1. PREDNISONE [Concomitant]
  2. ADVAIR DISKUS 100/50 [Suspect]
     Indication: ASTHMA
     Dosage: 1PUFF TWICE PER DAY
     Route: 055
     Dates: start: 20110324, end: 20110301
  3. TRAMADOL HCL [Concomitant]
  4. MECLIZINE [Concomitant]
  5. OXYBUTYNIN [Concomitant]
  6. SPIRONOLACTONE [Concomitant]

REACTIONS (3)
  - DIZZINESS [None]
  - DYSPNOEA [None]
  - NAUSEA [None]
